FAERS Safety Report 4269621-3 (Version None)
Quarter: 2004Q1

REPORT INFORMATION
  Report Type: 
  Country: None (occurrence: None)
  Receive Date: 20040112
  Receipt Date: 20031218
  Transmission Date: 20041129
  Serious: Yes (Other)
  Sender: FDA-Public Use
  Company Number: 2003IM001270

PATIENT
  Age: 48 Year
  Sex: Male

DRUGS (1)
  1. ADVAFERON (A643_INTERFERON ALFACON-1) [Suspect]
     Indication: HEPATITIS CHRONIC ACTIVE
     Dosage: 12 MU;TIW;SUBCUTANEOUS
     Route: 058
     Dates: start: 20020617

REACTIONS (3)
  - HYALURONIC ACID INCREASED [None]
  - MYALGIA [None]
  - VIRAL TEST POSITIVE [None]
